FAERS Safety Report 5872744-6 (Version None)
Quarter: 2008Q3

REPORT INFORMATION
  Report Type: 
  Country: None (occurrence: None)
  Receive Date: 20080905
  Receipt Date: 20080825
  Transmission Date: 20090109
  Serious: Yes (Other)
  Sender: FDA-Public Use
  Company Number: US-PFIZER INC-2008058770

PATIENT
  Sex: Male
  Weight: 112.9 kg

DRUGS (1)
  1. LYRICA [Suspect]
     Indication: NEUROPATHY PERIPHERAL
     Dates: start: 20070216, end: 20070501

REACTIONS (4)
  - OEDEMA PERIPHERAL [None]
  - RENAL FAILURE CHRONIC [None]
  - SINUSITIS [None]
  - SWELLING FACE [None]
